FAERS Safety Report 8965638 (Version 2)
Quarter: 2013Q1

REPORT INFORMATION
  Report Type: Spontaneous
  Country: JP (occurrence: None)
  Receive Date: 20121204
  Receipt Date: 20130208
  Transmission Date: 20140127
  Serious: Yes (Hospitalization)
  Sender: FDA-Public Use
  Company Number: 0233905

PATIENT
  Age: 58 Year
  Sex: Male

DRUGS (4)
  1. TACHOSIL [Suspect]
     Indication: HAEMOSTASIS
     Dosage: UNK (2 SHEETS OF REGULAR SIZE)
     Dates: start: 20121002
  2. GABEXATE MESYLATE [Concomitant]
  3. CREXANE [Concomitant]
  4. WYSTAL [Concomitant]

REACTIONS (2)
  - Device related infection [None]
  - Device related infection [None]
